FAERS Safety Report 16437756 (Version 1)
Quarter: 2019Q2

REPORT INFORMATION
  Report Type: Spontaneous
  Country: IT (occurrence: IT)
  Receive Date: 20190616
  Receipt Date: 20190616
  Transmission Date: 20190711
  Serious: Yes (Hospitalization)
  Sender: FDA-Public Use
  Company Number: PHHY2019IT135860

PATIENT
  Age: 8 Year
  Sex: Male
  Weight: 57 kg

DRUGS (17)
  1. METHOTREXATE. [Suspect]
     Active Substance: METHOTREXATE
     Indication: BURKITT^S LYMPHOMA
     Dosage: 12 MG, 1 CYCLICAL
     Route: 037
     Dates: start: 20180925
  2. ZOFRAN [Concomitant]
     Active Substance: ONDANSETRON HYDROCHLORIDE
     Indication: PRODUCT USED FOR UNKNOWN INDICATION
     Dosage: 16 MG, QD
     Route: 042
     Dates: start: 20181116, end: 20181120
  3. ETOPOSIDE. [Suspect]
     Active Substance: ETOPOSIDE
     Indication: BURKITT^S LYMPHOMA
     Dosage: 153 MG, 1 CYCLICAL
     Route: 042
     Dates: start: 20181119
  4. VINCRISTINE [Suspect]
     Active Substance: VINCRISTINE
     Indication: BURKITT^S LYMPHOMA
     Dosage: 2 MG, 1 CYCLICAL
     Route: 042
     Dates: start: 20181002
  5. CYTARABINE. [Suspect]
     Active Substance: CYTARABINE
     Dosage: 459 MG, 1 CYCLICAL
     Route: 042
     Dates: start: 20181119
  6. URBASON [Concomitant]
     Active Substance: METHYLPREDNISOLONE
     Indication: PRODUCT USED FOR UNKNOWN INDICATION
     Dosage: 10 MG, CYCLIC
     Route: 037
     Dates: start: 20180925, end: 20181210
  7. IFOSFAMIDE. [Suspect]
     Active Substance: IFOSFAMIDE
     Indication: BURKITT^S LYMPHOMA
     Dosage: 1224 MG, 1 CYCLICAL
     Route: 042
     Dates: start: 20181116
  8. MABTHERA [Suspect]
     Active Substance: RITUXIMAB
     Indication: BURKITT^S LYMPHOMA
     Dosage: 574 MG, UNK
     Route: 042
     Dates: start: 20181001
  9. CYTARABINE. [Suspect]
     Active Substance: CYTARABINE
     Indication: BURKITT^S LYMPHOMA
     Dosage: 30 MG, 1 CYCLICAL
     Route: 037
     Dates: start: 20180925
  10. LASIX [Concomitant]
     Active Substance: FUROSEMIDE
     Indication: PRODUCT USED FOR UNKNOWN INDICATION
     Dosage: 28 MG, TOTAL
     Route: 042
     Dates: start: 20181116, end: 20181116
  11. DECADRON [Concomitant]
     Active Substance: DEXAMETHASONE
     Indication: PRODUCT USED FOR UNKNOWN INDICATION
     Dosage: 15.3 MG, QD
     Route: 042
     Dates: start: 20181116, end: 20181120
  12. BACTRIM [Concomitant]
     Active Substance: SULFAMETHOXAZOLE\TRIMETHOPRIM
     Indication: PRODUCT USED FOR UNKNOWN INDICATION
     Dosage: 2 DF, CYCLIC
     Route: 048
     Dates: end: 20181208
  13. METHOTREXATE. [Suspect]
     Active Substance: METHOTREXATE
     Dosage: 1530 MG, 1 CYCLICAL
     Route: 042
     Dates: start: 20181116
  14. DECADRON [Concomitant]
     Active Substance: DEXAMETHASONE
     Dosage: 7.5 MG, QD
     Route: 048
     Dates: start: 20181121, end: 20181126
  15. MYCOSTATIN [Concomitant]
     Active Substance: NYSTATIN
     Indication: PRODUCT USED FOR UNKNOWN INDICATION
     Dosage: 15 ML, UNK
     Route: 048
  16. UROMITEXAN [Concomitant]
     Active Substance: MESNA
     Indication: BURKITT^S LYMPHOMA
     Dosage: 920 MG, 1 CYCLICAL
     Route: 042
     Dates: start: 20181116, end: 20181120
  17. CIPROXIN [Concomitant]
     Active Substance: CIPROFLOXACIN
     Indication: PRODUCT USED FOR UNKNOWN INDICATION
     Dosage: 1000 MG, QD
     Route: 065
     Dates: start: 20181107

REACTIONS (1)
  - Aplasia [Recovered/Resolved]

NARRATIVE: CASE EVENT DATE: 20181126
